FAERS Safety Report 6743511-6 (Version None)
Quarter: 2010Q2

REPORT INFORMATION
  Report Type: 
  Country: None (occurrence: None)
  Receive Date: 20100526
  Receipt Date: 20100526
  Transmission Date: 20101027
  Serious: Yes (Life-Threatening, Hospitalization, Disabling)
  Sender: FDA-Public Use
  Company Number: None

PATIENT
  Age: 41 Year
  Sex: Female
  Weight: 53.0709 kg

DRUGS (1)
  1. LISINOPRIL [Suspect]
     Dosage: 40 MG 1 DAY MOUTH
     Route: 048
     Dates: start: 20090925, end: 20091105

REACTIONS (1)
  - MEDICATION ERROR [None]
